FAERS Safety Report 20565296 (Version 2)
Quarter: 2022Q1

REPORT INFORMATION
  Report Type: Report from Study
  Country: US (occurrence: US)
  Receive Date: 20220308
  Receipt Date: 20220314
  Transmission Date: 20220423
  Serious: Yes (Hospitalization, Other)
  Sender: FDA-Public Use
  Company Number: US-ASTELLAS-2021US027800

PATIENT
  Age: 90 Year
  Sex: Male

DRUGS (21)
  1. ENZALUTAMIDE [Suspect]
     Active Substance: ENZALUTAMIDE
     Indication: Hormone-refractory prostate cancer
     Dosage: 80 MG, ONCE DAILY (WITH OR WITHOUT FOOD AT SAME TIME DAILY, DO NOT CRUSH/BREAK/DISSOLVE)
     Route: 048
     Dates: start: 202101, end: 20210721
  2. ENZALUTAMIDE [Suspect]
     Active Substance: ENZALUTAMIDE
     Indication: Bone cancer metastatic
     Dosage: 80 MG(2 CAPSULE AT SAME TIME WITH OR WITHOUT FOOD, SWALLOW WHOLE) ONCE DAILY
     Route: 048
     Dates: end: 20210829
  3. ENZALUTAMIDE [Suspect]
     Active Substance: ENZALUTAMIDE
     Indication: Prostatic specific antigen increased
     Dosage: 80 MG(2 CAPSULE AT SAME TIME WITH OR WITHOUT FOOD, SWALLOW WHOLE) ONCE DAILY
     Route: 048
  4. ENZALUTAMIDE [Suspect]
     Active Substance: ENZALUTAMIDE
     Route: 048
     Dates: start: 20211016
  5. ENZALUTAMIDE [Suspect]
     Active Substance: ENZALUTAMIDE
     Dosage: 80 MG(2 CAPSULE AT SAME TIME WITH OR WITHOUT FOOD, SWALLOW WHOLE) ONCE DAILY
     Route: 048
     Dates: start: 20220106
  6. ENZALUTAMIDE [Suspect]
     Active Substance: ENZALUTAMIDE
     Route: 048
  7. FLOMAX [Concomitant]
     Active Substance: TAMSULOSIN HYDROCHLORIDE
     Indication: Product used for unknown indication
     Dosage: 0.4 MG, ONCE DAILY
     Route: 048
     Dates: start: 20201025
  8. XGEVA [Concomitant]
     Active Substance: DENOSUMAB
     Indication: Product used for unknown indication
     Dosage: 120 MG, OTHER EVERY 12 WEEKS
     Route: 065
  9. TRAVATAN Z [Concomitant]
     Active Substance: TRAVOPROST
     Indication: Product used for unknown indication
     Dosage: UNK UNK (1 DROP), UNKNOWN FREQ.
     Route: 065
  10. LUPRON DEPOT [Concomitant]
     Active Substance: LEUPROLIDE ACETATE
     Indication: Product used for unknown indication
     Dosage: 22.5 MG, (INJECT 1 KIT EVERY 3 MONTH) UNKNOWN FREQ.
     Route: 030
     Dates: end: 20210502
  11. LUPRON DEPOT [Concomitant]
     Active Substance: LEUPROLIDE ACETATE
     Dosage: UNK UNK, UNKNOWN FREQ.
     Route: 065
  12. KRILL OIL [Concomitant]
     Active Substance: DIETARY SUPPLEMENT\KRILL OIL
     Indication: Product used for unknown indication
     Route: 065
  13. ADVIL [Concomitant]
     Active Substance: IBUPROFEN
     Indication: Product used for unknown indication
     Route: 048
  14. CHONDROITIN SULFATE (BOVINE)\GLUCOSAMINE HYDROCHLORIDE [Concomitant]
     Active Substance: CHONDROITIN SULFATE (BOVINE)\GLUCOSAMINE HYDROCHLORIDE
     Indication: Product used for unknown indication
     Dosage: UNK UNK (500-400 MG), ONCE DAILY
     Route: 048
  15. GLUCOSAMINE SULFATE [Concomitant]
     Active Substance: GLUCOSAMINE SULFATE
     Indication: Product used for unknown indication
     Route: 048
  16. PEPCID [Concomitant]
     Active Substance: FAMOTIDINE
     Indication: Product used for unknown indication
     Route: 048
  17. VITAMIN B12 [Concomitant]
     Active Substance: CYANOCOBALAMIN
     Indication: Product used for unknown indication
     Route: 048
  18. VITAMIN D3 [Concomitant]
     Active Substance: CHOLECALCIFEROL
     Indication: Product used for unknown indication
     Dosage: 2000 IU (50 MCG (2,000 UNIT)), ONCE DAILY
     Route: 048
  19. CALCIUM [Concomitant]
     Active Substance: CALCIUM
     Indication: Product used for unknown indication
     Route: 048
  20. COMBIGAN [Concomitant]
     Active Substance: BRIMONIDINE TARTRATE\TIMOLOL MALEATE
     Indication: Product used for unknown indication
     Dosage: 0.2-0.5 %1 DROP (1 DROP INTO EACH EYE), TWICE DAILY
     Route: 065
     Dates: start: 20210420
  21. LACTOBACILLUS ACID [Concomitant]
     Indication: Product used for unknown indication
     Route: 048

REACTIONS (9)
  - Pericarditis [Recovered/Resolved]
  - Right ventricular failure [Unknown]
  - Sepsis [Unknown]
  - Colitis [Unknown]
  - Cardiotoxicity [Unknown]
  - Chest pain [Unknown]
  - Cardiac disorder [Unknown]
  - Off label use [Unknown]
  - Underdose [Unknown]

NARRATIVE: CASE EVENT DATE: 20210201
